FAERS Safety Report 15098719 (Version 1)
Quarter: 2018Q3

REPORT INFORMATION
  Report Type: Spontaneous
  Country: IT (occurrence: IT)
  Receive Date: 20180702
  Receipt Date: 20180702
  Transmission Date: 20181010
  Serious: Yes (Other)
  Sender: FDA-Public Use
  Company Number: IT-TEVA-2017-IT-839085

PATIENT
  Age: 16 Year
  Sex: Male
  Weight: 106 kg

DRUGS (2)
  1. ARIPIPRAZOLO FOCUS [Suspect]
     Active Substance: ARIPIPRAZOLE
     Dosage: 15 MILLIGRAM DAILY;
     Route: 048
  2. ARIPIPRAZOLO TEVA 15 MG COMPRESSE [Suspect]
     Active Substance: ARIPIPRAZOLE
     Dosage: 15 MILLIGRAM DAILY;
     Route: 048

REACTIONS (4)
  - Insomnia [Unknown]
  - Aggression [Unknown]
  - Intentional self-injury [Unknown]
  - Condition aggravated [Unknown]

NARRATIVE: CASE EVENT DATE: 20170601
